FAERS Safety Report 9162072 (Version 2)
Quarter: 2013Q1

REPORT INFORMATION
  Report Type: Spontaneous
  Country: JP (occurrence: None)
  Receive Date: 20130222
  Receipt Date: 20130314
  Transmission Date: 20140127
  Serious: No
  Sender: FDA-Public Use
  Company Number: SPI201300105

PATIENT
  Age: 42 Year
  Sex: Female
  Weight: 58 kg

DRUGS (1)
  1. AMITIZA [Suspect]
     Indication: CONSTIPATION
     Route: 048
     Dates: start: 20130128, end: 20130129

REACTIONS (7)
  - Chest pain [None]
  - Dyspnoea [None]
  - Chest discomfort [None]
  - Chest discomfort [None]
  - Chest discomfort [None]
  - Tachypnoea [None]
  - Diarrhoea [None]
